FAERS Safety Report 8173457-0 (Version None)
Quarter: 2012Q1

REPORT INFORMATION
  Report Type: 
  Country: None (occurrence: None)
  Receive Date: 20120104
  Receipt Date: 20111202
  Transmission Date: 20120608
  Serious: No
  Sender: FDA-Public Use
  Company Number: 2011HGS-002496

PATIENT
  Sex: Female

DRUGS (4)
  1. METHOTREXATE [Concomitant]
  2. PLAQUENIL (HYDROCXYCHLOROQUINE SULFATE) (HYDROXYCHLOROQUINE SULFATE) [Concomitant]
  3. BENLYSTA [Suspect]
     Indication: SYSTEMIC LUPUS ERYTHEMATOSUS
     Dosage: 10 MG/KG, INTRAVENOUS DRIP
     Route: 041
     Dates: start: 20110831, end: 20110831
  4. PREDNISONE [Concomitant]

REACTIONS (1)
  - NAUSEA [None]
